FAERS Safety Report 17173670 (Version 1)
Quarter: 2019Q4

REPORT INFORMATION
  Report Type: Report from Study
  Country: US (occurrence: US)
  Receive Date: 20191218
  Receipt Date: 20191218
  Transmission Date: 20200122
  Serious: No
  Sender: FDA-Public Use
  Company Number: NVSC2019US019628

PATIENT
  Age: 49 Year
  Sex: Female

DRUGS (1)
  1. TOMYCINE [Suspect]
     Active Substance: TOBRAMYCIN
     Indication: PRODUCT USED FOR UNKNOWN INDICATION
     Dosage: 300 MG
     Route: 049

REACTIONS (2)
  - Product taste abnormal [Unknown]
  - Product dose omission [Unknown]
